FAERS Safety Report 4443802-8 (Version None)
Quarter: 2004Q3

REPORT INFORMATION
  Report Type: 
  Country: None (occurrence: None)
  Receive Date: 20040729
  Receipt Date: 20020719
  Transmission Date: 20050211
  Serious: Yes (Other)
  Sender: FDA-Public Use
  Company Number: KII-2002-0003161

PATIENT
  Sex: Female

DRUGS (1)
  1. MS CONTIN [Suspect]
     Indication: PAIN

REACTIONS (2)
  - DRUG WITHDRAWAL SYNDROME [None]
  - DYSPNOEA [None]
